FAERS Safety Report 8141103-8 (Version None)
Quarter: 2012Q1

REPORT INFORMATION
  Report Type: 
  Country: None (occurrence: None)
  Receive Date: 20120216
  Receipt Date: 20120207
  Transmission Date: 20120608
  Serious: Yes (Other)
  Sender: FDA-Public Use
  Company Number: US-BAXTER-2012BH003324

PATIENT
  Sex: Female

DRUGS (2)
  1. DIANEAL [Suspect]
     Indication: PERITONEAL DIALYSIS
     Route: 033
     Dates: end: 20120128
  2. DIANEAL [Suspect]
     Route: 033
     Dates: start: 20120201

REACTIONS (1)
  - COMPLICATIONS OF TRANSPLANT SURGERY [None]
